FAERS Safety Report 14066757 (Version 1)
Quarter: 2017Q4

REPORT INFORMATION
  Report Type: Spontaneous
  Country: US (occurrence: US)
  Receive Date: 20171009
  Receipt Date: 20171009
  Transmission Date: 20180321
  Serious: No
  Sender: FDA-Public Use
  Company Number: US-BAYER-2017-188333

PATIENT
  Age: 68 Year
  Sex: Female
  Weight: 77 kg

DRUGS (2)
  1. BENADRYL [Concomitant]
     Active Substance: DIPHENHYDRAMINE HYDROCHLORIDE
     Dosage: UNK
  2. CLARITIN LIQUI-GELS [Suspect]
     Active Substance: LORATADINE
     Indication: DERMATITIS
     Dosage: 1 DF, BID
     Route: 048
     Dates: start: 20170926

REACTIONS (6)
  - Dizziness [Recovering/Resolving]
  - Inappropriate prescribing [None]
  - Drug administration error [Unknown]
  - Product use in unapproved indication [Unknown]
  - Product use issue [None]
  - Off label use [Unknown]

NARRATIVE: CASE EVENT DATE: 20170926
